FAERS Safety Report 8027983-5 (Version None)
Quarter: 2012Q1

REPORT INFORMATION
  Report Type: 
  Country: None (occurrence: None)
  Receive Date: 20120104
  Receipt Date: 20111221
  Transmission Date: 20120608
  Serious: Yes (Hospitalization, Other)
  Sender: FDA-Public Use
  Company Number: WAES 1111USA02023

PATIENT

DRUGS (4)
  1. BACTRIM [Concomitant]
  2. VALPROATE SODIUM [Concomitant]
  3. TAB RALTEGRAVIR POTASSIUM [Suspect]
     Indication: HIV INFECTION
     Dosage: 40 MG/BID
     Route: 048
     Dates: start: 20110928
  4. KALETRA [Concomitant]

REACTIONS (4)
  - HYPOGLYCAEMIA [None]
  - BLOOD BILIRUBIN INCREASED [None]
  - DYSPNOEA [None]
  - HAEMOGLOBIN DECREASED [None]
